FAERS Safety Report 13671262 (Version 1)
Quarter: 2017Q2

REPORT INFORMATION
  Report Type: Spontaneous
  Country: US (occurrence: US)
  Receive Date: 20170620
  Receipt Date: 20170620
  Transmission Date: 20170830
  Serious: No
  Sender: FDA-Public Use
  Company Number: US-ROCHE-1011598

PATIENT
  Sex: Female
  Weight: 68.2 kg

DRUGS (7)
  1. AVASTIN [Concomitant]
     Active Substance: BEVACIZUMAB
  2. VICODIN [Concomitant]
     Active Substance: ACETAMINOPHEN\HYDROCODONE BITARTRATE
  3. GABAPENTIN. [Concomitant]
     Active Substance: GABAPENTIN
  4. IRON GLUCONATE [Concomitant]
  5. MULTI-VITAMIN SUPPLEMENT [Concomitant]
     Active Substance: VITAMINS
  6. OXYBUTYNIN [Concomitant]
     Active Substance: OXYBUTYNIN
  7. XELODA [Suspect]
     Active Substance: CAPECITABINE
     Indication: BREAST CANCER METASTATIC
     Route: 048
     Dates: start: 20111019

REACTIONS (3)
  - Pain in extremity [Unknown]
  - Fatigue [Unknown]
  - Constipation [Unknown]
